FAERS Safety Report 6478826-2 (Version None)
Quarter: 2009Q4

REPORT INFORMATION
  Report Type: 
  Country: None (occurrence: None)
  Receive Date: 20091123
  Receipt Date: 20090807
  Transmission Date: 20100525
  Serious: No
  Sender: FDA-Public Use
  Company Number: 8050059

PATIENT
  Age: 39 Year
  Sex: Female
  Weight: 58 kg

DRUGS (3)
  1. CIMZIA [Suspect]
     Indication: CROHN'S DISEASE
     Dosage: 400 MG /M SC
     Route: 058
     Dates: start: 20090519
  2. ASACOL [Concomitant]
  3. AZOTHIOPINE [Concomitant]

REACTIONS (3)
  - HEADACHE [None]
  - HERPES ZOSTER [None]
  - PRURITUS [None]
